FAERS Safety Report 5418666-6 (Version None)
Quarter: 2007Q3

REPORT INFORMATION
  Report Type: 
  Country: None (occurrence: None)
  Receive Date: 20070817
  Receipt Date: 20070803
  Transmission Date: 20080115
  Serious: Yes (Death)
  Sender: FDA-Public Use
  Company Number: GB-GILEAD-2007-0011190

PATIENT
  Sex: Male

DRUGS (5)
  1. VIREAD [Suspect]
     Dates: start: 20070105
  2. HEPSERA [Suspect]
     Dates: start: 20061102
  3. ENTECAVIR [Suspect]
     Dates: start: 20070105
  4. LAMIVUDINE [Concomitant]
  5. HEPATITIS B IMMUNE GLOBULIN (HUMAN) [Concomitant]

REACTIONS (2)
  - VIRAL LOAD INCREASED [None]
  - VIRAL MUTATION IDENTIFIED [None]
